FAERS Safety Report 23699027 (Version 3)
Quarter: 2024Q2

REPORT INFORMATION
  Report Type: Report from Study
  Country: US (occurrence: None)
  Receive Date: 20240402
  Receipt Date: 20240522
  Transmission Date: 20240716
  Serious: Yes (Hospitalization, Other)
  Sender: FDA-Public Use
  Company Number: 2024A077366

PATIENT
  Age: 84 Year
  Sex: Female
  Weight: 44.3 kg

DRUGS (3)
  1. TEZEPELUMAB [Suspect]
     Active Substance: TEZEPELUMAB
     Indication: Asthma
     Route: 058
  2. BREZTRI [Suspect]
     Active Substance: BUDESONIDE\FORMOTEROL\GLYCOPYRROLATE
     Dosage: 160-9-4.8 MCG/ACT 2 PUFFS
     Route: 055
  3. SYMBICORT [Suspect]
     Active Substance: BUDESONIDE\FORMOTEROL FUMARATE DIHYDRATE
     Dosage: 160- 4.5 MCG/ACT 2 PUFFS
     Route: 055

REACTIONS (11)
  - Pulmonary fibrosis [Unknown]
  - Fall [Unknown]
  - Left ventricular dysfunction [Unknown]
  - Emphysema [Not Recovered/Not Resolved]
  - Compression fracture [Unknown]
  - Asthma [Unknown]
  - Hypotension [Unknown]
  - Ecchymosis [Unknown]
  - Weight increased [Unknown]
  - Drug ineffective [Unknown]
  - Off label use [Unknown]

NARRATIVE: CASE EVENT DATE: 20221101
